FAERS Safety Report 5978794-3 (Version None)
Quarter: 2008Q4

REPORT INFORMATION
  Report Type: 
  Country: None (occurrence: None)
  Receive Date: 20081204
  Receipt Date: 20081122
  Transmission Date: 20090506
  Serious: Yes (Other)
  Sender: FDA-Public Use
  Company Number: PHHY2008MX29797

PATIENT
  Sex: Female

DRUGS (3)
  1. DIOVAN [Suspect]
     Indication: HYPERTENSION
     Dosage: UNK
     Dates: start: 20080701, end: 20081101
  2. LOPRESSOR [Concomitant]
  3. PANTOPRAZOLE SODIUM [Concomitant]

REACTIONS (2)
  - ARRHYTHMIA [None]
  - GASTRITIS [None]
